FAERS Safety Report 8716775 (Version 2)
Quarter: 2012Q4

REPORT INFORMATION
  Report Type: 
  Country: US (occurrence: US)
  Receive Date: 20120810
  Receipt Date: 20121113
  Transmission Date: 20130627
  Serious: Yes (Other)
  Sender: FDA-Public Use
  Company Number: US-CELGENEUS-163-21880-12080082

PATIENT
  Sex: Female

DRUGS (29)
  1. REVLIMID [Suspect]
     Indication: MULTIPLE MYELOMA
     Dosage: 5 Milligram
     Route: 048
     Dates: start: 201002
  2. REVLIMID [Suspect]
     Dosage: 10 Milligram
     Route: 048
     Dates: start: 201004, end: 2010
  3. THALOMID [Suspect]
     Indication: MULTIPLE MYELOMA
  4. DEXAMETHASONE [Concomitant]
     Indication: MDS
     Dosage: 4 Milligram
     Route: 048
     Dates: start: 20120726
  5. ASPIRIN [Concomitant]
     Indication: DRUG USE FOR UNKNOWN INDICATION
     Dosage: 81 Milligram
     Route: 065
  6. LIPITOR [Concomitant]
     Indication: DRUG USE FOR UNKNOWN INDICATION
     Dosage: 80 Milligram
     Route: 048
  7. CALCIUM [Concomitant]
     Indication: DRUG USE FOR UNKNOWN INDICATION
     Dosage: 1200 Milligram
     Route: 048
  8. COREG [Concomitant]
     Indication: DRUG USE FOR UNKNOWN INDICATION
     Dosage: 6.25 Milligram
     Route: 048
  9. CENTRUM [Concomitant]
     Indication: DRUG USE FOR UNKNOWN INDICATION
     Dosage: 1 Tablet
     Route: 048
  10. FRAGMIN [Concomitant]
     Indication: DRUG USE FOR UNKNOWN INDICATION
     Dosage: 2500 units
     Route: 058
  11. ALLOPURINOL [Concomitant]
     Indication: DRUG USE FOR UNKNOWN INDICATION
     Dosage: 2.5 Milligram
     Route: 065
  12. ERGOCALCIFEROL [Concomitant]
     Indication: DRUG USE FOR UNKNOWN INDICATION
     Dosage: 50000 IU (International Unit)
     Route: 048
  13. LEXAPRO [Concomitant]
     Indication: DRUG USE FOR UNKNOWN INDICATION
     Dosage: 10 Milligram
     Route: 048
  14. GEMFIBROZIL [Concomitant]
     Indication: DRUG USE FOR UNKNOWN INDICATION
     Dosage: 1200 Milligram
     Route: 048
  15. HYDROCODONE/ACETAMINOPHEN [Concomitant]
     Indication: PAIN
     Dosage: 5/500mg, 1 tablet
     Route: 048
  16. HYDROXYZINE [Concomitant]
     Indication: DRUG USE FOR UNKNOWN INDICATION
     Dosage: 25 Milligram
     Route: 048
  17. KEPPRA [Concomitant]
     Indication: DRUG USE FOR UNKNOWN INDICATION
     Dosage: 500 Milligram
     Route: 065
  18. MAGNESIUM OXIDE [Concomitant]
     Indication: DRUG USE FOR UNKNOWN INDICATION
     Dosage: 2 tabs
     Route: 048
  19. RITALIN [Concomitant]
     Indication: DRUG USE FOR UNKNOWN INDICATION
     Dosage: 5 Milligram
     Route: 065
  20. NORTRIPTYLINE [Concomitant]
     Indication: DRUG USE FOR UNKNOWN INDICATION
     Dosage: 10 Milligram
     Route: 065
  21. PROTONIX [Concomitant]
     Indication: DRUG USE FOR UNKNOWN INDICATION
     Dosage: 80 Milligram
     Route: 048
  22. PHENERGAN [Concomitant]
     Indication: NAUSEA
     Dosage: 25 Milligram
     Route: 048
  23. MAXALT [Concomitant]
     Indication: DRUG USE FOR UNKNOWN INDICATION
     Dosage: 1-2 tablets
     Route: 048
  24. SPIRONOLACTONE [Concomitant]
     Indication: EDEMA
     Dosage: 200 Milligram
     Route: 065
  25. TORSEMIDE [Concomitant]
     Indication: EDEMA
     Dosage: 10 Milligram
     Route: 048
  26. TORSEMIDE [Concomitant]
     Dosage: 2 Tablet
     Route: 048
     Dates: start: 201211
  27. VALTREX [Concomitant]
     Indication: PROPHYLACTIC
     Dosage: 500 Milligram
     Route: 065
  28. VITAMIN D [Concomitant]
     Indication: DRUG USE FOR UNKNOWN INDICATION
     Dosage: 50000 IU (International Unit)
     Route: 048
  29. TRANSFUSION [Concomitant]
     Indication: THROMBOCYTOPENIA
     Route: 041
     Dates: start: 201210, end: 201210

REACTIONS (1)
  - Myelodysplastic syndrome [Unknown]
